FAERS Safety Report 12954667 (Version 1)
Quarter: 2016Q4

REPORT INFORMATION
  Report Type: Spontaneous
  Country: US (occurrence: US)
  Receive Date: 20161117
  Receipt Date: 20161117
  Transmission Date: 20170207
  Serious: Yes (Other)
  Sender: FDA-Public Use
  Company Number: None

PATIENT
  Age: 60 Year
  Sex: Male
  Weight: 162 kg

DRUGS (5)
  1. SYNTHROID [Concomitant]
     Active Substance: LEVOTHYROXINE SODIUM
  2. JANUVIA [Suspect]
     Active Substance: SITAGLIPTIN PHOSPHATE
     Indication: TYPE 2 DIABETES MELLITUS
     Dosage: QUANTITY:1 TABLET(S); ORAL?
     Route: 048
  3. PRIMIDONE. [Concomitant]
     Active Substance: PRIMIDONE
  4. DESONIDE. [Concomitant]
     Active Substance: DESONIDE
  5. PROPRANOLOL [Concomitant]
     Active Substance: PROPRANOLOL\PROPRANOLOL HYDROCHLORIDE

REACTIONS (6)
  - Speech disorder [None]
  - Dizziness [None]
  - Incoherent [None]
  - Feeling abnormal [None]
  - Emotional disorder [None]
  - Fear [None]
